FAERS Safety Report 4699883-X (Version None)
Quarter: 2005Q2

REPORT INFORMATION
  Report Type: 
  Country: None (occurrence: None)
  Receive Date: 20050624
  Receipt Date: 20050216
  Transmission Date: 20051028
  Serious: Yes (Hospitalization, Other)
  Sender: FDA-Public Use
  Company Number: US-MERCK-0502USA02343

PATIENT
  Age: 36 Year
  Sex: Female
  Weight: 139 kg

DRUGS (7)
  1. VIOXX [Suspect]
     Indication: ARTHRALGIA
     Route: 048
     Dates: start: 20010101, end: 20030214
  2. VIOXX [Suspect]
     Route: 048
     Dates: start: 20030215
  3. PLAVIX [Concomitant]
     Route: 065
  4. PRILOSEC [Concomitant]
     Route: 065
  5. CELEBREX [Concomitant]
     Route: 065
  6. TYLENOL [Concomitant]
     Route: 065
  7. ADVIL [Concomitant]
     Route: 065

REACTIONS (13)
  - BLOOD CHOLESTEROL INCREASED [None]
  - CEREBROVASCULAR ACCIDENT [None]
  - CHEST PAIN [None]
  - DEPRESSION [None]
  - DYSPEPSIA [None]
  - DYSPNOEA [None]
  - EAR DISCOMFORT [None]
  - GASTROOESOPHAGEAL REFLUX DISEASE [None]
  - MUSCLE STRAIN [None]
  - MYOCARDIAL INFARCTION [None]
  - SYNCOPE [None]
  - TACHYCARDIA [None]
  - TRANSIENT ISCHAEMIC ATTACK [None]
